FAERS Safety Report 18416749 (Version 2)
Quarter: 2020Q4

REPORT INFORMATION
  Report Type: Spontaneous
  Country: US (occurrence: US)
  Receive Date: 20201022
  Receipt Date: 20201026
  Transmission Date: 20210114
  Serious: No
  Sender: FDA-Public Use
  Company Number: US-PFIZER INC-2020405701

PATIENT
  Sex: Female
  Weight: 54.43 kg

DRUGS (1)
  1. CHANTIX [Suspect]
     Active Substance: VARENICLINE TARTRATE
     Indication: SMOKING CESSATION THERAPY
     Dosage: UNK

REACTIONS (4)
  - Insomnia [Unknown]
  - Mood altered [Recovering/Resolving]
  - Tension [Recovering/Resolving]
  - Nightmare [Recovering/Resolving]
